FAERS Safety Report 7902994-6 (Version None)
Quarter: 2011Q4

REPORT INFORMATION
  Report Type: 
  Country: None (occurrence: None)
  Receive Date: 20111103
  Receipt Date: 20111019
  Transmission Date: 20120403
  Serious: Yes (Hospitalization)
  Sender: FDA-Public Use
  Company Number: DSA_47953_2011

PATIENT
  Age: 74 Year
  Sex: Female

DRUGS (2)
  1. ZOLTUM /00661201/ (GRAN ZOLTUM - OMEPRAZOLE) 20 MG (NOT SPECIFIED) [Suspect]
     Indication: PRODUCT USED FOR UNKNOWN INDICATION
     Dosage: 20 MG, DAILY ORAL
     Route: 048
     Dates: start: 20110603, end: 20110613
  2. ENALAPRIL MALEATE [Suspect]
     Indication: HYPERTENSION
     Dosage: DF ORAL
     Route: 048
     Dates: start: 20090101, end: 20110613

REACTIONS (9)
  - FALL [None]
  - DISTURBANCE IN ATTENTION [None]
  - LOSS OF CONSCIOUSNESS [None]
  - GENERAL PHYSICAL HEALTH DETERIORATION [None]
  - DEHYDRATION [None]
  - DRY MOUTH [None]
  - MALAISE [None]
  - HYPONATRAEMIA [None]
  - FEMORAL NECK FRACTURE [None]
